FAERS Safety Report 8775569 (Version 4)
Quarter: 2013Q1

REPORT INFORMATION
  Report Type: Report from Study
  Country: DE (occurrence: DE)
  Receive Date: 20120909
  Receipt Date: 20130314
  Transmission Date: 20140127
  Serious: Yes (Hospitalization)
  Sender: FDA-Public Use
  Company Number: DE-ABBOTT-12P-062-0958214-00

PATIENT
  Sex: Female
  Weight: 46 kg

DRUGS (8)
  1. HUMIRA 40 MG/ 0.8 ML PRE-FILLED SYRINGE [Suspect]
     Indication: JUVENILE IDIOPATHIC ARTHRITIS
     Route: 058
     Dates: end: 20121114
  2. HUMIRA 40 MG/ 0.8 ML PRE-FILLED SYRINGE [Suspect]
     Indication: PSORIATIC ARTHROPATHY
  3. OSTAC [Suspect]
     Indication: PAIN
     Dates: start: 201204
  4. OSTAC [Suspect]
     Indication: OSTEOPOROSIS
  5. LANTAREL [Concomitant]
     Indication: JUVENILE IDIOPATHIC ARTHRITIS
     Dates: start: 201112
  6. LANTAREL [Concomitant]
     Indication: PSORIATIC ARTHROPATHY
  7. RANITIDIN [Concomitant]
     Indication: GASTRITIS
     Route: 048
     Dates: start: 201203
  8. MTX [Concomitant]
     Indication: PRODUCT USED FOR UNKNOWN INDICATION

REACTIONS (1)
  - Hypertension [Recovered/Resolved]
